FAERS Safety Report 10589678 (Version 2)
Quarter: 2014Q4

REPORT INFORMATION
  Report Type: Spontaneous
  Country: IT (occurrence: IT)
  Receive Date: 20141118
  Receipt Date: 20141118
  Transmission Date: 20150529
  Serious: Yes (Hospitalization)
  Sender: FDA-Public Use
  Company Number: PHHY2014IT140378

PATIENT
  Age: 15 Year
  Sex: Female

DRUGS (1)
  1. VOLTAREN [Suspect]
     Active Substance: DICLOFENAC SODIUM
     Indication: MUSCULOSKELETAL PAIN
     Dosage: 100 MG, UNK
     Route: 065

REACTIONS (5)
  - Asthenia [Unknown]
  - Chest pain [Unknown]
  - Nausea [Unknown]
  - Abdominal pain upper [Unknown]
  - Intestinal haemorrhage [Unknown]
